FAERS Safety Report 9549966 (Version 1)
Quarter: 2013Q3

REPORT INFORMATION
  Report Type: Spontaneous
  Country: AT (occurrence: AT)
  Receive Date: 20130924
  Receipt Date: 20130924
  Transmission Date: 20140515
  Serious: Yes (Other)
  Sender: FDA-Public Use
  Company Number: AT-BAXTER-2013BAX036444

PATIENT
  Sex: 0

DRUGS (3)
  1. CEPROTIN 500 I.E. PULVER UND L?SUNGSMITTEL ZUR HERSTELLUNG EINER INJEK [Suspect]
     Indication: PURPURA FULMINANS
     Dosage: 100 U/KG
  2. CEPROTIN 500 I.E. PULVER UND L?SUNGSMITTEL ZUR HERSTELLUNG EINER INJEK [Suspect]
     Indication: SEPSIS
     Dosage: 10 U/KG
  3. CEPROTIN 500 I.E. PULVER UND L?SUNGSMITTEL ZUR HERSTELLUNG EINER INJEK [Suspect]
     Indication: OFF LABEL USE

REACTIONS (1)
  - Drug ineffective [Unknown]
